FAERS Safety Report 25942146 (Version 2)
Quarter: 2025Q4

REPORT INFORMATION
  Report Type: Spontaneous
  Country: JP (occurrence: JP)
  Receive Date: 20251020
  Receipt Date: 20251029
  Transmission Date: 20260119
  Serious: Yes (Life-Threatening, Hospitalization)
  Sender: SANDOZ
  Company Number: None

PATIENT
  Age: 11 Month
  Sex: Male
  Weight: 7.4 kg

DRUGS (13)
  1. CYCLOPHOSPHAMIDE [Suspect]
     Active Substance: CYCLOPHOSPHAMIDE
     Indication: Acute lymphocytic leukaemia
     Dosage: 110 MG, QD
     Route: 042
     Dates: start: 201410, end: 201410
  2. CYCLOPHOSPHAMIDE [Suspect]
     Active Substance: CYCLOPHOSPHAMIDE
     Dosage: 460 MG, QD
     Route: 042
     Dates: start: 201501, end: 201501
  3. CYCLOPHOSPHAMIDE [Suspect]
     Active Substance: CYCLOPHOSPHAMIDE
     Dosage: 93 MG, QD
     Route: 042
     Dates: start: 201411, end: 201411
  4. CYTARABINE [Suspect]
     Active Substance: CYTARABINE
     Dosage: 1100 MG, QD
     Route: 042
     Dates: start: 201411, end: 201411
  5. CYTARABINE [Suspect]
     Active Substance: CYTARABINE
     Dosage: 15 MG, QD
     Route: 037
     Dates: start: 201408
  6. CYTARABINE [Suspect]
     Active Substance: CYTARABINE
     Indication: Acute lymphocytic leukaemia
     Dosage: 26 MG, QD
     Route: 042
     Dates: start: 201408, end: 201408
  7. DAUNORUBICIN [Suspect]
     Active Substance: DAUNORUBICIN
     Indication: Acute lymphocytic leukaemia
     Dosage: 19 MG, QD
     Route: 042
     Dates: start: 201411, end: 201411
  8. ETOPOSIDE [Suspect]
     Active Substance: ETOPOSIDE
     Indication: Acute lymphocytic leukaemia
     Dosage: 35 MG, QD
     Route: 042
     Dates: start: 201410, end: 201410
  9. ASPARAGINASE [Suspect]
     Active Substance: ASPARAGINASE
     Indication: Acute lymphocytic leukaemia
     Dosage: 3500 IU, QD
     Route: 042
  10. METHOTREXATE [Suspect]
     Active Substance: METHOTREXATE
     Indication: Acute lymphocytic leukaemia
     Dosage: 1440 MG, QD
     Route: 042
     Dates: start: 201409, end: 201409
  11. METHOTREXATE [Suspect]
     Active Substance: METHOTREXATE
     Dosage: 2.8 MG, QD
     Route: 042
     Dates: start: 201501, end: 201501
  12. VINCRISTINE [Suspect]
     Active Substance: VINCRISTINE
     Indication: Acute lymphocytic leukaemia
     Dosage: 0.34 MG, QD
     Route: 042
     Dates: start: 201408, end: 201408
  13. VINCRISTINE [Suspect]
     Active Substance: VINCRISTINE
     Dosage: 0.37 MG, QD
     Route: 042
     Dates: start: 201412, end: 201412

REACTIONS (1)
  - Pulmonary arterial hypertension [Recovered/Resolved]

NARRATIVE: CASE EVENT DATE: 20150201
